FAERS Safety Report 7119613-1 (Version None)
Quarter: 2010Q4

REPORT INFORMATION
  Report Type: 
  Country: None (occurrence: None)
  Receive Date: 20101115
  Receipt Date: 20101104
  Transmission Date: 20110411
  Serious: Yes (Other)
  Sender: FDA-Public Use
  Company Number: JHP201000349

PATIENT

DRUGS (1)
  1. KETALAR [Suspect]
     Indication: DRUG ABUSE

REACTIONS (9)
  - DYSURIA [None]
  - HAEMATURIA [None]
  - HYPERTROPHY [None]
  - INFLAMMATION [None]
  - LYMPHADENOPATHY [None]
  - MICTURITION URGENCY [None]
  - POLLAKIURIA [None]
  - RENAL PAPILLARY NECROSIS [None]
  - URGE INCONTINENCE [None]
